FAERS Safety Report 7512104-5 (Version None)
Quarter: 2011Q2

REPORT INFORMATION
  Report Type: 
  Country: None (occurrence: None)
  Receive Date: 20110520
  Receipt Date: 20110509
  Transmission Date: 20111010
  Serious: Yes (Death, Hospitalization, Disabling, Other)
  Sender: FDA-Public Use
  Company Number: CIP08001077

PATIENT
  Age: 52 Year
  Sex: Male

DRUGS (20)
  1. TAKEPRON (LANSOPRAZOLE) [Concomitant]
  2. ANPLAG (SARPOGRELATE HYDROCHLORIDE) [Concomitant]
  3. KETOPROFEN [Concomitant]
  4. TAURINE [Concomitant]
  5. LIVACT (VALINE, LEUCINE, ISOLEUCINE) [Concomitant]
  6. PROMAC (POLAPREZINC) [Concomitant]
  7. CALTAN (CALCIUM CARBONATE) [Concomitant]
  8. NEUROVITAN (CYANOCOBALAMIN, PYRIDOXINE HYDROCHLORIDE) [Concomitant]
  9. ALLOPURINOL [Concomitant]
  10. PORTOLAC (LACTITOL) [Concomitant]
  11. LACTULOSE [Concomitant]
  12. DIDRONEL [Suspect]
     Indication: DYSTROPHIC CALCIFICATION
     Dosage: 200 MG AT BEDTIME, ORAL; 200 MG DAILY, ORAL, 200 MG DAILY, ORAL, 200 MG DAILY, ORAL; 200 MG DAILY, O
     Route: 048
     Dates: start: 20060222, end: 20071101
  13. DIDRONEL [Suspect]
     Indication: DYSTROPHIC CALCIFICATION
     Dosage: 200 MG AT BEDTIME, ORAL; 200 MG DAILY, ORAL, 200 MG DAILY, ORAL, 200 MG DAILY, ORAL; 200 MG DAILY, O
     Route: 048
     Dates: start: 20080320, end: 20080419
  14. DIDRONEL [Suspect]
     Indication: DYSTROPHIC CALCIFICATION
     Dosage: 200 MG AT BEDTIME, ORAL; 200 MG DAILY, ORAL, 200 MG DAILY, ORAL, 200 MG DAILY, ORAL; 200 MG DAILY, O
     Route: 048
     Dates: start: 20050731, end: 20050814
  15. DIDRONEL [Suspect]
     Indication: DYSTROPHIC CALCIFICATION
     Dosage: 200 MG AT BEDTIME, ORAL; 200 MG DAILY, ORAL, 200 MG DAILY, ORAL, 200 MG DAILY, ORAL; 200 MG DAILY, O
     Route: 048
     Dates: start: 20050506, end: 20050520
  16. DIDRONEL [Suspect]
     Indication: DYSTROPHIC CALCIFICATION
     Dosage: 200 MG AT BEDTIME, ORAL; 200 MG DAILY, ORAL, 200 MG DAILY, ORAL, 200 MG DAILY, ORAL; 200 MG DAILY, O
     Route: 048
     Dates: start: 20050930, end: 20060106
  17. METHYCOBAL (MECOBALAMIN) [Concomitant]
  18. GASTROM (ECABET MONOSODIUM) [Concomitant]
  19. TULOBUTEROL [Concomitant]
  20. METLIGINE (MIDODRINE HYDROCHLORIDE) [Concomitant]

REACTIONS (30)
  - RIB FRACTURE [None]
  - FEMORAL NECK FRACTURE [None]
  - INCORRECT DRUG ADMINISTRATION DURATION [None]
  - MUSCULOSKELETAL PAIN [None]
  - BURSITIS [None]
  - VASCULITIS [None]
  - PULMONARY OEDEMA [None]
  - DECREASED ACTIVITY [None]
  - AMMONIA INCREASED [None]
  - VISUAL IMPAIRMENT [None]
  - INFLAMMATION [None]
  - BONE PAIN [None]
  - PAPILLOPHLEBITIS [None]
  - CONDITION AGGRAVATED [None]
  - VASCULAR CALCIFICATION [None]
  - OSTEOPOROSIS [None]
  - PAPILLOEDEMA [None]
  - ULNA FRACTURE [None]
  - BLINDNESS UNILATERAL [None]
  - CONTRAINDICATION TO MEDICAL TREATMENT [None]
  - PSEUDARTHROSIS [None]
  - QUALITY OF LIFE DECREASED [None]
  - PLEURAL EFFUSION [None]
  - GAIT DISTURBANCE [None]
  - C-REACTIVE PROTEIN INCREASED [None]
  - RADIUS FRACTURE [None]
  - FRACTURE DELAYED UNION [None]
  - ARTHRALGIA [None]
  - PAIN IN EXTREMITY [None]
  - HYPOPROTEINAEMIA [None]
